FAERS Safety Report 9337533 (Version 2)
Quarter: 2013Q2

REPORT INFORMATION
  Report Type: Other
  Country: DE (occurrence: DE)
  Receive Date: 20130607
  Receipt Date: 20130628
  Transmission Date: 20140414
  Serious: Yes (Other)
  Sender: FDA-Public Use
  Company Number: DE-BRISTOL-MYERS SQUIBB COMPANY-18993923

PATIENT
  Age: 17 Year
  Sex: Male

DRUGS (2)
  1. METFORMIN HCL [Suspect]
     Indication: WEIGHT INCREASED
     Dosage: 850 MG 2 TIMES DAILY
  2. METHYLPHENIDATE [Suspect]
     Indication: DECREASED ACTIVITY

REACTIONS (2)
  - Grand mal convulsion [Recovered/Resolved]
  - Gastrointestinal disorder [Recovered/Resolved]
